FAERS Safety Report 8999908 (Version 1)
Quarter: 2013Q1

REPORT INFORMATION
  Report Type: Report from Study
  Country: US (occurrence: US)
  Receive Date: 20130102
  Receipt Date: 20130102
  Transmission Date: 20140127
  Serious: No
  Sender: FDA-Public Use
  Company Number: US-VERTEX PHARMACEUTICALS INC.-2012-026774

PATIENT
  Age: 55 None
  Sex: Male
  Weight: 85 kg

DRUGS (7)
  1. VX-950 (TELAPREVIR) [Suspect]
     Indication: HEPATITIS C
     Dosage: 750 MG, TID
     Route: 048
     Dates: start: 20121201, end: 20121217
  2. RIBAVIRIN [Suspect]
     Indication: HEPATITIS C
     Dosage: 200 MG, UNK
     Route: 048
     Dates: start: 20121212, end: 20121217
  3. PEGASYS [Suspect]
     Indication: HEPATITIS C
     Dosage: 180 ?G, UNK
     Route: 058
     Dates: start: 20121211, end: 20121217
  4. CORTAID                            /00028601/ [Concomitant]
     Indication: PRURITUS
     Dosage: 1 %, UNK
  5. BENADRYL                           /00000402/ [Concomitant]
     Indication: PRURITUS
     Dosage: 12.5/5 ML
  6. ASPIRIN BUFFERED [Concomitant]
     Dosage: 325 MG, UNK
  7. MULTIVITAMIN                       /00097801/ [Concomitant]

REACTIONS (10)
  - Tunnel vision [Recovered/Resolved]
  - Headache [Recovered/Resolved]
  - Thinking abnormal [Recovered/Resolved]
  - Poor quality sleep [Recovered/Resolved]
  - Formication [Recovered/Resolved]
  - Rash generalised [None]
  - Joint swelling [Recovered/Resolved]
  - Local swelling [Recovered/Resolved]
  - Skin exfoliation [Unknown]
  - Pruritus generalised [Recovered/Resolved]
